FAERS Safety Report 8532004-1 (Version None)
Quarter: 2012Q3

REPORT INFORMATION
  Report Type: 
  Country: None (occurrence: None)
  Receive Date: 20120723
  Receipt Date: 20120717
  Transmission Date: 20120928
  Serious: Yes (Other)
  Sender: FDA-Public Use
  Company Number: US-BAYER-200939466NA

PATIENT
  Sex: Male
  Weight: 61 kg

DRUGS (39)
  1. TRASYLOL [Suspect]
     Dosage: 25 ML/HR
     Dates: start: 20050328
  2. BICARBONAT [Concomitant]
     Indication: PRODUCT USED FOR UNKNOWN INDICATION
     Dosage: 100 MEQ, UNK
     Route: 042
  3. FENTANYL [Concomitant]
     Dosage: UNK
     Route: 042
     Dates: start: 20050323
  4. PROPOFOL [Concomitant]
     Dosage: UNK
     Route: 042
     Dates: start: 20050328
  5. TRASYLOL [Suspect]
     Indication: CORONARY ARTERY BYPASS
     Dosage: 100 ML, UNK
     Route: 042
     Dates: start: 20050328
  6. PROPOXYPHENE NAPSYLATE W/PARACETAMOL [Concomitant]
     Dosage: 1 UNK, UNK
     Route: 048
  7. AMINOCAPROIC ACID [Concomitant]
     Dosage: UNK
     Route: 042
     Dates: start: 20050328
  8. PLAVIX [Concomitant]
     Indication: PRODUCT USED FOR UNKNOWN INDICATION
     Dosage: 75 MG, UNK
     Route: 048
     Dates: start: 20050323
  9. LASIX [Concomitant]
     Indication: PRODUCT USED FOR UNKNOWN INDICATION
     Dosage: 80 MG, UNK
     Route: 042
  10. PROTAMINE SULFATE [Concomitant]
     Indication: PRODUCT USED FOR UNKNOWN INDICATION
     Dosage: 350 MG, UNK
     Route: 042
  11. CALCIUM CHLORIDE [Concomitant]
     Indication: PRODUCT USED FOR UNKNOWN INDICATION
     Dosage: 1 G, UNK
     Route: 042
  12. DROPERIDOL [Concomitant]
     Dosage: 1.25-2.5 MG
     Route: 042
  13. LIPITOR [Concomitant]
     Indication: PRODUCT USED FOR UNKNOWN INDICATION
     Dosage: 80 MG, UNK
     Route: 048
     Dates: start: 20050323
  14. PHENYLEPHRINE HCL [Concomitant]
     Indication: PRODUCT USED FOR UNKNOWN INDICATION
     Dosage: 100 ML, UNK
     Route: 042
  15. FENTANYL [Concomitant]
     Dosage: UNK
     Route: 042
     Dates: start: 20050328
  16. NOREPINEPHRINE [Concomitant]
     Dosage: UNK
     Route: 042
     Dates: start: 20050328
  17. DOPAMINE HCL [Concomitant]
     Dosage: UNK
     Route: 042
     Dates: start: 20050328
  18. ACETAMINOPHEN [Concomitant]
     Indication: PRODUCT USED FOR UNKNOWN INDICATION
     Dosage: 325 MG, UNK
     Route: 048
     Dates: start: 20050323
  19. HEPARIN [Concomitant]
     Indication: PRODUCT USED FOR UNKNOWN INDICATION
     Dosage: 31000 U, UNK
     Route: 042
  20. PLATELETS [Concomitant]
  21. RED BLOOD CELLS [Concomitant]
  22. VERSED [Concomitant]
     Dosage: 2 MG, UNK
     Route: 042
  23. MIDAZOLAM [Concomitant]
     Dosage: UNK
     Route: 042
     Dates: start: 20050328
  24. MILRINONE LACTATE [Concomitant]
     Dosage: UNK
     Route: 042
     Dates: start: 20050328
  25. DOPAMINE HCL [Concomitant]
     Indication: PRODUCT USED FOR UNKNOWN INDICATION
     Dosage: UNK
     Route: 042
     Dates: start: 20050323
  26. ASPIRIN [Concomitant]
     Indication: PRODUCT USED FOR UNKNOWN INDICATION
     Dosage: 325 MG, UNK
     Route: 048
     Dates: start: 20050323
  27. DIOVAN HCT [Concomitant]
     Indication: PRODUCT USED FOR UNKNOWN INDICATION
     Dosage: 80/12.5 MG
     Route: 048
  28. ALBUMIN (HUMAN) [Concomitant]
     Indication: PRODUCT USED FOR UNKNOWN INDICATION
     Dosage: 50 G, UNK
     Route: 042
  29. MAGNESIUM SULFATE [Concomitant]
     Indication: PRODUCT USED FOR UNKNOWN INDICATION
     Dosage: 2 G, UNK
     Route: 042
  30. METOPROLOL SUCCINATE [Concomitant]
     Dosage: UNK
     Route: 042
     Dates: start: 20050328
  31. HEPARIN [Concomitant]
     Dosage: 25,000 UNITES/250 ML AT 10 ML/HR
     Route: 042
     Dates: start: 20050324
  32. VASOTEC [Concomitant]
     Dosage: 5 MG, QD
     Route: 048
     Dates: start: 20050324
  33. SUCCINYLCHOLINE CHLORIDE [Concomitant]
     Dosage: UNK
     Route: 042
     Dates: start: 20050328
  34. MORPHINE SULFATE [Concomitant]
     Dosage: UNK
     Route: 042
     Dates: start: 20050328
  35. NITROGLYCERIN [Concomitant]
     Indication: PRODUCT USED FOR UNKNOWN INDICATION
     Dosage: 50MG/250ML
     Route: 042
     Dates: start: 20050323
  36. ATENOLOL [Concomitant]
     Indication: PRODUCT USED FOR UNKNOWN INDICATION
     Dosage: 25 MG, UNK
     Route: 048
     Dates: start: 20050323
  37. MANNITOL [Concomitant]
     Indication: PRODUCT USED FOR UNKNOWN INDICATION
     Dosage: 25 G, UNK
     Route: 042
  38. CEFUROXIME [Concomitant]
     Dosage: 1.5 G, UNK
     Route: 042
     Dates: start: 20050328
  39. PANCURONIUM BROMIDE [Concomitant]
     Dosage: UNK
     Route: 042
     Dates: start: 20050328

REACTIONS (5)
  - PAIN [None]
  - RENAL FAILURE ACUTE [None]
  - UNEVALUABLE EVENT [None]
  - INJURY [None]
  - RENAL FAILURE [None]
